FAERS Safety Report 10142491 (Version 4)
Quarter: 2015Q2

REPORT INFORMATION
  Report Type: Spontaneous
  Country: US (occurrence: US)
  Receive Date: 20140430
  Receipt Date: 20150630
  Transmission Date: 20150821
  Serious: Yes (Hospitalization, Other)
  Sender: FDA-Public Use
  Company Number: US-AMGEN-USASP2014030743

PATIENT
  Age: 49 Year
  Sex: Female

DRUGS (1)
  1. ENBREL [Suspect]
     Active Substance: ETANERCEPT
     Indication: PSORIASIS
     Dosage: 50 MG, EVERY OTHER WEEK
     Route: 065
     Dates: start: 20030101

REACTIONS (11)
  - Injection site bruising [Unknown]
  - Fatigue [Not Recovered/Not Resolved]
  - Seasonal allergy [Not Recovered/Not Resolved]
  - Cerebrovascular accident [Recovered/Resolved]
  - Antiphospholipid antibodies [Recovered/Resolved]
  - Feeling abnormal [Recovered/Resolved]
  - Expired product administered [Recovered/Resolved]
  - Nausea [Recovered/Resolved]
  - Psoriasis [Unknown]
  - Transient ischaemic attack [Recovered/Resolved]
  - Atrial septal defect [Unknown]

NARRATIVE: CASE EVENT DATE: 2011
